FAERS Safety Report 8209348-6 (Version None)
Quarter: 2012Q1

REPORT INFORMATION
  Report Type: 
  Country: None (occurrence: None)
  Receive Date: 20120314
  Receipt Date: 20120312
  Transmission Date: 20120608
  Serious: No
  Sender: FDA-Public Use
  Company Number: US-PFIZER INC-2012065565

PATIENT

DRUGS (1)
  1. VENLAFAXINE HCL [Suspect]
     Dosage: UNK

REACTIONS (4)
  - MOOD ALTERED [None]
  - ABDOMINAL DISCOMFORT [None]
  - MALAISE [None]
  - UNEVALUABLE EVENT [None]
